FAERS Safety Report 5134357-3 (Version None)
Quarter: 2006Q4

REPORT INFORMATION
  Report Type: 
  Country: None (occurrence: None)
  Receive Date: 20061025
  Receipt Date: 20061016
  Transmission Date: 20070319
  Serious: Yes (Other)
  Sender: FDA-Public Use
  Company Number: BR-JNJFOC-20061004359

PATIENT
  Age: 35 Year
  Sex: Female
  Weight: 60 kg

DRUGS (4)
  1. EXTRA STRENGTH TYLENOL [Suspect]
     Indication: HEADACHE
     Route: 048
  2. EXTRA STRENGTH TYLENOL [Suspect]
     Indication: PYREXIA
     Route: 048
  3. CORISTINA D [Concomitant]
     Indication: DRUG USE FOR UNKNOWN INDICATION
  4. NEBACETIN [Concomitant]
     Indication: WOUND
     Route: 061

REACTIONS (4)
  - DIZZINESS [None]
  - DRUG INEFFECTIVE [None]
  - EPISTAXIS [None]
  - MALAISE [None]
